FAERS Safety Report 5487117-8 (Version None)
Quarter: 2007Q4

REPORT INFORMATION
  Report Type: 
  Country: None (occurrence: None)
  Receive Date: 20071016
  Receipt Date: 20071004
  Transmission Date: 20080405
  Serious: Yes (Other)
  Sender: FDA-Public Use
  Company Number: GB-ROCHE-511186

PATIENT
  Age: 39 Year
  Sex: Female
  Weight: 82.6 kg

DRUGS (1)
  1. XENICAL [Suspect]
     Indication: OBESITY
     Route: 048
     Dates: start: 20070418, end: 20070601

REACTIONS (5)
  - DIARRHOEA [None]
  - FATIGUE [None]
  - FLATULENCE [None]
  - GASTROINTESTINAL INFLAMMATION [None]
  - RECTAL HAEMORRHAGE [None]
